FAERS Safety Report 8882024 (Version 1)
Quarter: 2012Q4

REPORT INFORMATION
  Report Type: 
  Country: US (occurrence: US)
  Receive Date: 20121105
  Receipt Date: 20121105
  Transmission Date: 20130627
  Serious: Yes (Hospitalization, Other)
  Sender: FDA-Public Use
  Company Number: US-TEVA-361771USA

PATIENT
  Age: 26 Year
  Sex: Male

DRUGS (1)
  1. CLOZAPINE [Suspect]
     Indication: INTERMITTENT EXPLOSIVE DISORDER
     Route: 048
     Dates: end: 20120922

REACTIONS (5)
  - Septic shock [Unknown]
  - Respiratory failure [Unknown]
  - Bone marrow failure [Unknown]
  - Pancytopenia [Unknown]
  - Small intestinal obstruction [Unknown]
